FAERS Safety Report 16659023 (Version 1)
Quarter: 2019Q3

REPORT INFORMATION
  Report Type: Spontaneous
  Country: DE (occurrence: DE)
  Receive Date: 20190801
  Receipt Date: 20190801
  Transmission Date: 20191004
  Serious: Yes (Life-Threatening, Hospitalization)
  Sender: FDA-Public Use
  Company Number: DE-BAXTER-2019BAX014573

PATIENT
  Age: 38 Year
  Sex: Male

DRUGS (5)
  1. THIOPENTAL [Suspect]
     Active Substance: THIOPENTAL
     Indication: ANAESTHESIA
     Dosage: 525 MG, UNK
     Route: 065
  2. ISOFLURAN BAXTER [Suspect]
     Active Substance: ISOFLURANE
     Indication: ANAESTHESIA
     Dosage: 0.7% END-TIDAL CONCENTRATION
     Route: 065
  3. FENTANYL. [Suspect]
     Active Substance: FENTANYL
     Indication: ANAESTHESIA
     Dosage: 0.1 MG, UNK
     Route: 065
  4. VECURONIUM [Suspect]
     Active Substance: VECURONIUM BROMIDE
     Indication: ANAESTHESIA
     Dosage: 7.5 MG, UNK
     Route: 065
  5. NITROUS OXIDE. [Suspect]
     Active Substance: NITROUS OXIDE
     Indication: ANAESTHESIA
     Dosage: 65 %, UNK
     Route: 065

REACTIONS (7)
  - Mechanical ventilation complication [Recovered/Resolved]
  - Metabolic acidosis [Recovered/Resolved]
  - Muscle rigidity [Recovered/Resolved]
  - Hypertension [Recovered/Resolved]
  - Tachycardia [Recovered/Resolved]
  - Hyperthermia malignant [Recovered/Resolved]
  - Mechanical ventilation [Unknown]
